FAERS Safety Report 9474868 (Version 3)
Quarter: 2013Q3

REPORT INFORMATION
  Report Type: Spontaneous
  Country: IT (occurrence: IT)
  Receive Date: 20130823
  Receipt Date: 20130906
  Transmission Date: 20140515
  Serious: Yes (Other)
  Sender: FDA-Public Use
  Company Number: IT-ACTAVIS-2013-08339

PATIENT
  Age: 69 Year
  Sex: Female

DRUGS (4)
  1. PACLITAXEL [Suspect]
     Indication: PERITONEAL NEOPLASM
     Dosage: 324 MG, UNK
     Route: 042
     Dates: start: 20130320, end: 20130418
  2. ZANTAC [Concomitant]
     Indication: PRODUCT USED FOR UNKNOWN INDICATION
     Dosage: 1 DF, UNK
     Route: 042
  3. FLEBOCORTID [Concomitant]
     Indication: PRODUCT USED FOR UNKNOWN INDICATION
     Dosage: 250 MG, UNKNOWN
     Route: 042
  4. TRIMETON                           /00072502/ [Concomitant]
     Indication: PRODUCT USED FOR UNKNOWN INDICATION
     Dosage: 1 UNK, UNK
     Route: 042

REACTIONS (4)
  - Back pain [Recovered/Resolved]
  - Dyspnoea [Recovered/Resolved]
  - Hypertensive crisis [Recovered/Resolved]
  - Abdominal pain [Recovered/Resolved]
